FAERS Safety Report 7276697 (Version 2)
Quarter: 2014Q3

REPORT INFORMATION
  Report Type: Spontaneous
  Country: IT (occurrence: None)
  Receive Date: 20100125
  Receipt Date: 20140724
  Transmission Date: 20150326
  Serious: Yes (Hospitalization)
  Sender: FDA-Public Use
  Company Number: 479951

PATIENT
  Age: 55 Year
  Sex: Female

DRUGS (3)
  1. METHYLPREDNISOLONE [Suspect]
     Active Substance: METHYLPREDNISOLONE
     Indication: ARTHRITIS
     Dosage: 4 MG,; 8 MG
     Route: 048
     Dates: start: 200209, end: 2003
  2. CYCLOSPORINE. [Suspect]
     Active Substance: CYCLOSPORINE
     Indication: ARTHRITIS
     Dosage: 150 MG,
  3. METHOTREXATE [Suspect]
     Active Substance: METHOTREXATE
     Indication: ARTHRITIS
     Dosage: 5 MG, 1 WEEK, ORAL
     Route: 048
     Dates: start: 200209, end: 2003

REACTIONS (3)
  - Dysphonia [None]
  - Kaposi^s sarcoma [None]
  - Human herpesvirus 8 infection [None]
